FAERS Safety Report 5951519-3 (Version None)
Quarter: 2008Q4

REPORT INFORMATION
  Report Type: 
  Country: None (occurrence: None)
  Receive Date: 20081113
  Receipt Date: 20081106
  Transmission Date: 20090506
  Serious: Yes (Congenital Anomaly)
  Sender: FDA-Public Use
  Company Number: IE-AVENTIS-200816075EU

PATIENT

DRUGS (1)
  1. CLEXANE [Suspect]
     Indication: PULMONARY EMBOLISM
     Route: 064
     Dates: start: 20070512, end: 20071201

REACTIONS (2)
  - DRUG EXPOSURE DURING PREGNANCY [None]
  - HAEMANGIOMA CONGENITAL [None]
